FAERS Safety Report 8691153 (Version 2)
Quarter: 2012Q4

REPORT INFORMATION
  Report Type: Spontaneous
  Country: US (occurrence: None)
  Receive Date: 20120703
  Receipt Date: 20120919
  Transmission Date: 20130627
  Serious: Yes (Hospitalization)
  Sender: FDA-Public Use
  Company Number: 2012032695

PATIENT
  Age: 55 Year
  Sex: Female
  Weight: 92.08 kg

DRUGS (32)
  1. HIZENTRA [Suspect]
     Indication: HYPOGAMMAGLOBULINAEMIA
     Dosage: (4 GM 20 ML VIAL, 5 SITES OVER 3-4 HOURS)
     Route: 058
     Dates: start: 20120621
  2. OXYGEN (OXYGEN) [Concomitant]
  3. CYMBALTA [Concomitant]
  4. DEXAMETHASONE SODIUM PHOSPHATE [Concomitant]
  5. CARBAMAZEPINE [Concomitant]
  6. CLONAZEPAM [Concomitant]
  7. ZOFRAN [Concomitant]
  8. LAMICTAL [Concomitant]
  9. TREXIMET (SUMATRIPTAN) [Concomitant]
  10. SYMBICORT [Concomitant]
  11. RHINOCORT (BUDESONIDE) [Concomitant]
  12. SEROQUEL (QUETIAPINE), 50 MG [Concomitant]
  13. IPRATROPIUM BROMIDE (IPRATROPIUM BROMIDE) [Concomitant]
  14. BENICAR HCT (BENICAR HCT) [Concomitant]
  15. ALBUTEROL (SALBUTAMOL) [Concomitant]
  16. TOPAMAX (TOPIRAMATE) [Concomitant]
  17. PHENERGAN (PROMETHAZINE) [Concomitant]
  18. FIORICET (AXOTAL /00727001/) [Concomitant]
  19. PRILOSEC (OMEPRAZOLE) [Concomitant]
  20. ACETAMINOPHEN WITH CODEINE (GALENIC /PARACETAMOL/CODEINE/) [Concomitant]
  21. ASPIRIN (ACETYLSALICYLIC ACID) [Concomitant]
  22. DIPHENHYDRAMINE (DIPHENHYDRAMINE) [Concomitant]
  23. EPI-PEN (EPINEPHRINE) [Concomitant]
  24. NORMAL SALINE (SODIUM CHLORIDE) [Concomitant]
  25. SODIUM CHLORIDE (SODIUM CHLORIDE) [Concomitant]
  26. LOSARTAN POTASSIUM (LOSARTAN POTASSIUM) [Concomitant]
  27. NORTRIPTYLINE HCL (MOTIVAL) [Concomitant]
  28. ZANAFLEX (TIZANIDINE HYDROCHLORIDE) [Concomitant]
  29. PULMICORT (BUDESONIDE) [Concomitant]
  30. LOVASTATIN (LOVASTATIN) [Concomitant]
  31. DEXTROSE (GLUCOSE), LEVULOSE (FRUCTOSE), PHOSPHORIC ACID [Concomitant]
  32. CHERATUSSIN AC (CHERATUSSIN AC) [Concomitant]

REACTIONS (7)
  - Hypotension [None]
  - Anxiety [None]
  - Dizziness [None]
  - Burning sensation [None]
  - Pain [None]
  - Erythema [None]
  - Dyspepsia [None]
